FAERS Safety Report 6274005-2 (Version None)
Quarter: 2009Q3

REPORT INFORMATION
  Report Type: 
  Country: None (occurrence: None)
  Receive Date: 20090720
  Receipt Date: 20090708
  Transmission Date: 20100115
  Serious: Yes (Other)
  Sender: FDA-Public Use
  Company Number: AU-PFIZER INC-2009238515

PATIENT

DRUGS (1)
  1. VIAGRA [Suspect]
     Dosage: 25 MG, 2X/DAY
     Dates: start: 20090601

REACTIONS (1)
  - GASTROINTESTINAL HAEMORRHAGE [None]
